FAERS Safety Report 4334050-0 (Version None)
Quarter: 2004Q1

REPORT INFORMATION
  Report Type: 
  Country: None (occurrence: None)
  Receive Date: 20040329
  Receipt Date: 20031222
  Transmission Date: 20041129
  Serious: No
  Sender: FDA-Public Use
  Company Number: 03P-163-0245438-00

PATIENT
  Age: 66 Year
  Sex: Male
  Weight: 80.7403 kg

DRUGS (5)
  1. HUMIRA [Suspect]
     Indication: RHEUMATOID ARTHRITIS
     Dosage: 40 MG, 1 IN 1 WK, SUBCUTANEOUS
     Route: 058
     Dates: start: 20030701
  2. PREDNISONE [Concomitant]
  3. WARFARIN SODIUM [Concomitant]
  4. ATENOLOL [Concomitant]
  5. ALENDRONATE SODIUM [Concomitant]

REACTIONS (2)
  - POSTOPERATIVE INFECTION [None]
  - SWELLING [None]
